FAERS Safety Report 7357809-4 (Version None)
Quarter: 2011Q1

REPORT INFORMATION
  Report Type: 
  Country: None (occurrence: None)
  Receive Date: 20110317
  Receipt Date: 20110309
  Transmission Date: 20110831
  Serious: Yes (Other)
  Sender: FDA-Public Use
  Company Number: ZA-JNJFOC-20110107648

PATIENT
  Sex: Male

DRUGS (2)
  1. CONCERTA [Suspect]
     Indication: ATTENTION DEFICIT/HYPERACTIVITY DISORDER
     Dosage: 54 MG MORNING AND 18 MG AT 15.00 (PM)
     Route: 048
  2. CONCERTA [Suspect]
     Dosage: MANE
     Route: 048

REACTIONS (3)
  - TINNITUS [None]
  - INSOMNIA [None]
  - DECREASED APPETITE [None]
